FAERS Safety Report 6186109-3 (Version None)
Quarter: 2009Q2

REPORT INFORMATION
  Report Type: 
  Country: None (occurrence: None)
  Receive Date: 20090507
  Receipt Date: 20090507
  Transmission Date: 20091009
  Serious: No
  Sender: FDA-Public Use
  Company Number: None

PATIENT
  Sex: Male
  Weight: 134 kg

DRUGS (16)
  1. TEGRETOL [Suspect]
     Dosage: 200MG TABLET 200 MG BID
     Route: 048
     Dates: start: 20090123, end: 20090506
  2. ACIDOPHILUS (LACTOBACILLUS) [Concomitant]
  3. ALDARA [Concomitant]
  4. ANDROGEL 1% (TESTOSTERONE 1% GEL) [Concomitant]
  5. CHOLESTYRAMINE RESIN DRIED [Concomitant]
  6. CITALOPRAM HYDROBROMIDE [Concomitant]
  7. CLOBETASOL PROPIONATE 0.05% [Concomitant]
  8. EFUDEX 5% (FLUOROURACIL 5%) [Concomitant]
  9. FLUTICASONE PROPIONATE [Concomitant]
  10. LEVITRA [Concomitant]
  11. LEVOTHYROXINE SODIUM [Concomitant]
  12. LIDODERM [Concomitant]
  13. METAMUCIL (PSYLLIUM) [Concomitant]
  14. PRILOSEC [Concomitant]
  15. TRAZODONE HCL [Concomitant]
  16. TYLENOL #3 (ACETAMINOPHEN W/CODEINE 30MG) [Concomitant]

REACTIONS (1)
  - DIARRHOEA [None]
